FAERS Safety Report 6457730-X (Version None)
Quarter: 2009Q4

REPORT INFORMATION
  Report Type: 
  Country: None (occurrence: None)
  Receive Date: 20091120
  Receipt Date: 20091109
  Transmission Date: 20100525
  Serious: Yes (Death, Life-Threatening, Hospitalization)
  Sender: FDA-Public Use
  Company Number: 1-20232895

PATIENT
  Age: 4 Day
  Sex: Female
  Weight: 3.49 kg

DRUGS (5)
  1. AMMONUL [Suspect]
     Indication: COMA
     Dosage: 250 MG/KG/DAY, INTRAVENOUS
     Route: 042
     Dates: start: 20090325, end: 20090327
  2. ARGININE CHLORHYDRATE [Concomitant]
  3. CEFOTAXIME [Concomitant]
  4. VANCOMYCIN [Concomitant]
  5. GENTAMICIN [Concomitant]

REACTIONS (5)
  - AMMONIA INCREASED [None]
  - DISSEMINATED INTRAVASCULAR COAGULATION [None]
  - HAEMODIALYSIS [None]
  - HYPERAMMONAEMIA [None]
  - STATUS EPILEPTICUS [None]
